FAERS Safety Report 7738671-4 (Version None)
Quarter: 2011Q3

REPORT INFORMATION
  Report Type: 
  Country: None (occurrence: None)
  Receive Date: 20110908
  Receipt Date: 20110902
  Transmission Date: 20111222
  Serious: No
  Sender: FDA-Public Use
  Company Number: US-PFIZER INC-2011208294

PATIENT
  Age: 63 Year
  Sex: Male
  Weight: 72.562 kg

DRUGS (1)
  1. GENOTROPIN [Suspect]
     Indication: GROWTH HORMONE DEFICIENCY
     Dosage: UNK

REACTIONS (1)
  - BLOOD GROWTH HORMONE DECREASED [None]
